FAERS Safety Report 5819674-3 (Version None)
Quarter: 2008Q3

REPORT INFORMATION
  Report Type: 
  Country: None (occurrence: None)
  Receive Date: 20080723
  Receipt Date: 20080714
  Transmission Date: 20090109
  Serious: Yes (Other)
  Sender: FDA-Public Use
  Company Number: JP-PFIZER INC-2008055702

PATIENT
  Age: 66 Year
  Sex: Female

DRUGS (5)
  1. XALATAN [Suspect]
     Indication: OCULAR HYPERTENSION
     Route: 047
  2. CONIEL [Concomitant]
     Route: 048
  3. VALSARTAN [Concomitant]
     Route: 048
  4. BROMOCRIPTINE MESYLATE [Concomitant]
     Route: 048
  5. OMEPRAZOLE [Concomitant]
     Route: 048

REACTIONS (1)
  - CARDIAC HYPERTROPHY [None]
